FAERS Safety Report 9443140 (Version 1)
Quarter: 2013Q3

REPORT INFORMATION
  Report Type: Spontaneous
  Country: US (occurrence: US)
  Receive Date: 20130806
  Receipt Date: 20130806
  Transmission Date: 20140515
  Serious: Yes (Hospitalization, Other)
  Sender: FDA-Public Use
  Company Number: US-PURDUE-USA-2013-0105103

PATIENT
  Sex: Female

DRUGS (4)
  1. DILAUDID TABLET [Suspect]
     Indication: PAIN
     Dosage: 8 MG, Q4H PRN
     Route: 048
     Dates: start: 2008, end: 20130717
  2. SOMA [Concomitant]
     Indication: PAIN
     Dosage: 350 MG, TID
     Route: 048
     Dates: start: 2002
  3. XANAX [Concomitant]
     Indication: ANXIETY
     Dosage: 2 MG, TID
     Route: 048
     Dates: start: 2007
  4. ENALAPRIL [Concomitant]
     Indication: BLOOD PRESSURE
     Dosage: 20 MG, DAILY
     Dates: start: 2010

REACTIONS (2)
  - Pneumonia [Unknown]
  - Chronic obstructive pulmonary disease [Unknown]
